FAERS Safety Report 9838801 (Version 1)
Quarter: 2014Q1

REPORT INFORMATION
  Report Type: Spontaneous
  Country: NO (occurrence: NO)
  Receive Date: 20140123
  Receipt Date: 20140123
  Transmission Date: 20141002
  Serious: Yes (Other)
  Sender: FDA-Public Use
  Company Number: NO-TEVA-457021ISR

PATIENT
  Sex: 0

DRUGS (5)
  1. CITALOPRAM [Suspect]
  2. TOLVON [Concomitant]
  3. DICLOFENAC [Concomitant]
  4. NAPROXEN [Concomitant]
  5. ATHROTEC [Concomitant]

REACTIONS (3)
  - Haematochezia [Unknown]
  - Blood iron decreased [Unknown]
  - Anaemia [Unknown]
